FAERS Safety Report 12917660 (Version 1)
Quarter: 2016Q4

REPORT INFORMATION
  Report Type: Spontaneous
  Country: US (occurrence: US)
  Receive Date: 20161107
  Receipt Date: 20161107
  Transmission Date: 20170207
  Serious: Yes (Hospitalization, Other)
  Sender: FDA-Public Use
  Company Number: US-PFIZER INC-2016511153

PATIENT
  Age: 50 Year
  Sex: Female

DRUGS (3)
  1. SOMA [Suspect]
     Active Substance: CARISOPRODOL
  2. LYRICA [Suspect]
     Active Substance: PREGABALIN
     Dosage: 750 MG, 1X/DAY
  3. MORPHINE SULFATE. [Suspect]
     Active Substance: MORPHINE SULFATE

REACTIONS (2)
  - Intentional overdose [Unknown]
  - Respiratory depression [Recovered/Resolved]
